FAERS Safety Report 7135063-6 (Version None)
Quarter: 2010Q4

REPORT INFORMATION
  Report Type: 
  Country: None (occurrence: None)
  Receive Date: 20101203
  Receipt Date: 20100406
  Transmission Date: 20110411
  Serious: No
  Sender: FDA-Public Use
  Company Number: US-BRISTOL-MYERS SQUIBB COMPANY-15051048

PATIENT
  Sex: Male

DRUGS (1)
  1. VIDEX [Suspect]

REACTIONS (1)
  - VASCULAR INJURY [None]
